FAERS Safety Report 5775968-1 (Version None)
Quarter: 2008Q2

REPORT INFORMATION
  Report Type: 
  Country: None (occurrence: None)
  Receive Date: 20080613
  Receipt Date: 20080610
  Transmission Date: 20081010
  Serious: Yes (Other)
  Sender: FDA-Public Use
  Company Number: 2008SP011353

PATIENT
  Sex: Female

DRUGS (1)
  1. MIRALAX [Suspect]
     Indication: DRUG USE FOR UNKNOWN INDICATION
     Dosage: 17 MG;QD;PO
     Route: 048

REACTIONS (2)
  - DIARRHOEA [None]
  - FAECES DISCOLOURED [None]
